FAERS Safety Report 7990209-2 (Version None)
Quarter: 2011Q4

REPORT INFORMATION
  Report Type: 
  Country: None (occurrence: None)
  Receive Date: 20111219
  Receipt Date: 20111214
  Transmission Date: 20120403
  Serious: Yes (Hospitalization)
  Sender: FDA-Public Use
  Company Number: FR-PFIZER INC-2011303862

PATIENT
  Age: 3 Year
  Sex: Female
  Weight: 16.8 kg

DRUGS (2)
  1. MAXILASE [Concomitant]
     Indication: NASOPHARYNGITIS
  2. PEDIATRIC ADVIL [Suspect]
     Indication: NASOPHARYNGITIS
     Dosage: UNK
     Route: 048
     Dates: start: 20111013, end: 20111016

REACTIONS (1)
  - NEPHROTIC SYNDROME [None]
